FAERS Safety Report 20938759 (Version 1)
Quarter: 2022Q2

REPORT INFORMATION
  Report Type: Spontaneous
  Country: US (occurrence: None)
  Receive Date: 20220608
  Receipt Date: 20220608
  Transmission Date: 20220720
  Serious: No
  Sender: FDA-Public Use
  Company Number: None

PATIENT
  Age: 16 Year
  Sex: Female
  Weight: 96.9 kg

DRUGS (2)
  1. DUPIXENT [Suspect]
     Active Substance: DUPILUMAB
     Indication: Eosinophilic oesophagitis
     Dosage: 300 MG EVERY 2 WEEKS SUBCUTANEOUS?
     Route: 058
     Dates: start: 20220326
  2. DUPIXENT [Suspect]
     Active Substance: DUPILUMAB
     Indication: Duodenal ulcer

REACTIONS (3)
  - Injection site pain [None]
  - Incorrect route of product administration [None]
  - Wrong technique in product usage process [None]

NARRATIVE: CASE EVENT DATE: 20220604
